FAERS Safety Report 20983033 (Version 2)
Quarter: 2022Q2

REPORT INFORMATION
  Report Type: Spontaneous
  Country: JP (occurrence: None)
  Receive Date: 20220620
  Receipt Date: 20220624
  Transmission Date: 20220720
  Serious: Yes (Other)
  Sender: FDA-Public Use
  Company Number: 2022A224407

PATIENT
  Age: 77 Year
  Sex: Female

DRUGS (10)
  1. ARIMIDEX [Suspect]
     Active Substance: ANASTROZOLE
     Indication: Breast cancer female
     Route: 048
     Dates: start: 200707, end: 2012
  2. ARIMIDEX [Suspect]
     Active Substance: ANASTROZOLE
     Indication: Breast cancer female
     Route: 048
     Dates: start: 201811, end: 201811
  3. ARIMIDEX [Suspect]
     Active Substance: ANASTROZOLE
     Indication: Breast cancer female
     Route: 048
     Dates: start: 201812, end: 201812
  4. ARIMIDEX [Suspect]
     Active Substance: ANASTROZOLE
     Indication: Breast cancer female
     Route: 048
     Dates: start: 201901, end: 201906
  5. FASLODEX [Suspect]
     Active Substance: FULVESTRANT
     Indication: Breast cancer female
     Dosage: 500 MG, INTRAMUSCULARLY,EVERY 2 WEEKS UNTIL THE 3RD DOSE, THEN EVERY 4 WEEKS
     Route: 030
     Dates: start: 201906
  6. FASLODEX [Suspect]
     Active Substance: FULVESTRANT
     Indication: Breast cancer female
     Dosage: 500 MG,
     Route: 030
     Dates: start: 201906
  7. PALBOCICLIB [Concomitant]
     Active Substance: PALBOCICLIB
     Indication: Breast cancer female
     Dosage: 100 MG DAILY ON A 3-WEEK-ON, 1-WEEK-OFF SCHEDULE
     Route: 065
     Dates: start: 201811, end: 201811
  8. PALBOCICLIB [Concomitant]
     Active Substance: PALBOCICLIB
     Indication: Breast cancer female
     Dosage: 75 MG DAILY ON A 3-WEEK-ON, 1-WEEK-OFF SCHEDULE
     Route: 065
     Dates: start: 201812, end: 201812
  9. ABEMACICLIB [Concomitant]
     Active Substance: ABEMACICLIB
     Indication: Breast cancer female
     Route: 048
     Dates: start: 201901, end: 201907
  10. ABEMACICLIB [Concomitant]
     Active Substance: ABEMACICLIB
     Indication: Breast cancer female
     Route: 048
     Dates: start: 201908

REACTIONS (3)
  - Neutrophil count decreased [Unknown]
  - Platelet count decreased [Unknown]
  - Myelosuppression [Unknown]
